FAERS Safety Report 24397031 (Version 3)
Quarter: 2025Q2

REPORT INFORMATION
  Report Type: Report from Study
  Country: CA (occurrence: CA)
  Receive Date: 20241004
  Receipt Date: 20250519
  Transmission Date: 20250717
  Serious: Yes (Other)
  Sender: SAMSUNG BIOEPIS
  Company Number: CA-SAMSUNG BIOEPIS-SB-2024-14303

PATIENT
  Sex: Female

DRUGS (1)
  1. RENFLEXIS [Suspect]
     Active Substance: INFLIXIMAB-ABDA
     Indication: Colitis ulcerative
     Dates: start: 20191219

REACTIONS (14)
  - Thyroid mass [Not Recovered/Not Resolved]
  - Paranasal sinus discomfort [Not Recovered/Not Resolved]
  - Dizziness [Not Recovered/Not Resolved]
  - Nasal septum deviation [Not Recovered/Not Resolved]
  - Exostosis [Not Recovered/Not Resolved]
  - Eye inflammation [Not Recovered/Not Resolved]
  - Sinusitis [Not Recovered/Not Resolved]
  - Secretion discharge [Unknown]
  - Lymphadenopathy [Not Recovered/Not Resolved]
  - Headache [Unknown]
  - Visual impairment [Not Recovered/Not Resolved]
  - Aphasia [Unknown]
  - Throat irritation [Unknown]
  - Off label use [Unknown]
